FAERS Safety Report 7208567-5 (Version None)
Quarter: 2011Q1

REPORT INFORMATION
  Report Type: 
  Country: None (occurrence: None)
  Receive Date: 20110104
  Receipt Date: 20101228
  Transmission Date: 20110831
  Serious: No
  Sender: FDA-Public Use
  Company Number: US-TEVA-261655USA

PATIENT
  Sex: Female

DRUGS (4)
  1. PREDNISONE [Concomitant]
  2. ANTIBIOTICS [Concomitant]
  3. ALBUTEROL SULFATE AUTOHALER [Suspect]
     Dosage: 2 PUFFS
     Dates: end: 20101227
  4. NEBULIZER [Concomitant]

REACTIONS (2)
  - DYSGEUSIA [None]
  - PAROSMIA [None]
